FAERS Safety Report 9135101 (Version 2)
Quarter: 2013Q1

REPORT INFORMATION
  Report Type: Spontaneous
  Country: JP (occurrence: JP)
  Receive Date: 20130304
  Receipt Date: 20130313
  Transmission Date: 20140127
  Serious: No
  Sender: FDA-Public Use
  Company Number: JP-ASTELLAS-2013US002229

PATIENT
  Sex: Female

DRUGS (6)
  1. AMBISOME [Suspect]
     Indication: BACTERIAL INFECTION
     Dosage: UNK
     Route: 042
  2. AMBISOME [Suspect]
     Indication: FUNGAL INFECTION
  3. MEROPEN [Suspect]
     Indication: BACTERIAL INFECTION
     Dosage: UNK
     Route: 042
  4. MEROPEN [Suspect]
     Indication: FUNGAL INFECTION
  5. RIFAMPICIN [Suspect]
     Indication: PRODUCT USED FOR UNKNOWN INDICATION
     Dosage: UNK
     Route: 048
  6. VANCOMYCIN HYDROCHLORIDE [Suspect]
     Indication: PRODUCT USED FOR UNKNOWN INDICATION
     Dosage: UNK
     Route: 065

REACTIONS (2)
  - Renal disorder [Not Recovered/Not Resolved]
  - Rash [Not Recovered/Not Resolved]
